FAERS Safety Report 19626102 (Version 2)
Quarter: 2021Q3

REPORT INFORMATION
  Report Type: Spontaneous
  Country: IE (occurrence: IE)
  Receive Date: 20210729
  Receipt Date: 20210730
  Transmission Date: 20211014
  Serious: Yes (Life-Threatening)
  Sender: FDA-Public Use
  Company Number: IE-PFIZER INC-202100910697

PATIENT
  Age: 59 Year
  Sex: Female

DRUGS (6)
  1. FLUCONAZOLE. [Suspect]
     Active Substance: FLUCONAZOLE
     Indication: ANTIFUNGAL PROPHYLAXIS
     Dosage: UNK
     Route: 048
  2. FLUCYTOSINE. [Concomitant]
     Active Substance: FLUCYTOSINE
     Dosage: UNK
     Route: 048
  3. PIPERACILLIN/TAZOBACTAM [Concomitant]
     Active Substance: PIPERACILLIN SODIUM\TAZOBACTAM SODIUM
     Indication: ANTIBIOTIC THERAPY
     Dosage: UNK
  4. CASPOFUNGIN ACETATE. [Concomitant]
     Active Substance: CASPOFUNGIN ACETATE
     Indication: FUNGAEMIA
     Dosage: UNK
     Route: 042
  5. TACROLIMUS. [Interacting]
     Active Substance: TACROLIMUS
     Dosage: UNK
  6. MIDODRINE [Concomitant]
     Active Substance: MIDODRINE
     Indication: LABILE BLOOD PRESSURE
     Dosage: UNK

REACTIONS (8)
  - Acute kidney injury [Unknown]
  - Fall [Unknown]
  - Toxicity to various agents [Unknown]
  - Decreased appetite [Unknown]
  - Depressed mood [Unknown]
  - Immunosuppressant drug level increased [Unknown]
  - Confusional state [Unknown]
  - Drug interaction [Unknown]
